FAERS Safety Report 6384632-X (Version None)
Quarter: 2009Q4

REPORT INFORMATION
  Report Type: 
  Country: None (occurrence: None)
  Receive Date: 20091001
  Receipt Date: 20090916
  Transmission Date: 20100525
  Serious: Yes (Death)
  Sender: FDA-Public Use
  Company Number: US-SANOFI-SYNTHELABO-A03200904231

PATIENT

DRUGS (2)
  1. PLAVIX [Suspect]
     Indication: DRUG USE FOR UNKNOWN INDICATION
     Dosage: RECEIVED LOADING DOSE IN EMERGENCY DEPT.
     Route: 048
  2. PLAVIX [Suspect]
     Dosage: RECEIVED LOADING DOSE IN CARDIAC CATH LAB
     Route: 048

REACTIONS (2)
  - DEATH [None]
  - OVERDOSE [None]
